FAERS Safety Report 5219555-2 (Version None)
Quarter: 2007Q1

REPORT INFORMATION
  Report Type: 
  Country: None (occurrence: None)
  Receive Date: 20070124
  Receipt Date: 20070124
  Transmission Date: 20070707
  Serious: Yes (Hospitalization, Other)
  Sender: FDA-Public Use
  Company Number: None

PATIENT
  Age: 77 Year
  Sex: Male
  Weight: 68.4932 kg

DRUGS (2)
  1. HEPARIN [Suspect]
     Indication: ARTERIAL STENOSIS LIMB
     Dosage: IV, ADJ TO APPT
     Route: 042
     Dates: start: 20060822, end: 20060918
  2. HEPARIN [Suspect]
     Indication: PERIPHERAL VASCULAR DISORDER
     Dosage: IV, ADJ TO APPT
     Route: 042
     Dates: start: 20060822, end: 20060918

REACTIONS (9)
  - ACUTE MYOCARDIAL INFARCTION [None]
  - ANTI-PLATELET ANTIBODY POSITIVE [None]
  - ARTERIAL THROMBOSIS LIMB [None]
  - CHRONIC OBSTRUCTIVE PULMONARY DISEASE [None]
  - CONDITION AGGRAVATED [None]
  - DRUG HYPERSENSITIVITY [None]
  - HEPARIN-INDUCED THROMBOCYTOPENIA [None]
  - LEG AMPUTATION [None]
  - PLATELET COUNT INCREASED [None]
